FAERS Safety Report 20957884 (Version 2)
Quarter: 2022Q3

REPORT INFORMATION
  Report Type: Spontaneous
  Country: US (occurrence: US)
  Receive Date: 20220614
  Receipt Date: 20220822
  Transmission Date: 20221027
  Serious: No
  Sender: FDA-Public Use
  Company Number: US-PFIZER INC-202200475651

PATIENT
  Age: 51 Year
  Sex: Female

DRUGS (1)
  1. BOSULIF [Suspect]
     Active Substance: BOSUTINIB MONOHYDRATE
     Dosage: 400 MG

REACTIONS (10)
  - Enzyme level increased [Unknown]
  - Arthralgia [Unknown]
  - Muscle spasms [Unknown]
  - Tumour marker decreased [Unknown]
  - Skin lesion [Unknown]
  - Pruritus [Unknown]
  - Feeling abnormal [Unknown]
  - Fatigue [Unknown]
  - Joint stiffness [Recovering/Resolving]
  - Hepatic enzyme increased [Unknown]
